FAERS Safety Report 13622551 (Version 1)
Quarter: 2017Q2

REPORT INFORMATION
  Report Type: Spontaneous
  Country: US (occurrence: US)
  Receive Date: 20170607
  Receipt Date: 20170607
  Transmission Date: 20170830
  Serious: Yes (Other)
  Sender: FDA-Public Use
  Company Number: US-ROCHE-770619

PATIENT
  Age: 43 Year
  Sex: Female

DRUGS (18)
  1. METHOTREXATE. [Concomitant]
     Active Substance: METHOTREXATE
     Indication: PROPHYLAXIS
     Dosage: RECEIVED 5 DOSES OF INTRATHECAL METHOTREXATE POST INDUCTION THERAPY.
     Route: 037
  2. EMTRICITABINE [Concomitant]
     Active Substance: EMTRICITABINE
     Indication: HIV INFECTION
     Route: 065
  3. ESOMEPRAZOLE [Concomitant]
     Active Substance: ESOMEPRAZOLE
     Indication: PROPHYLAXIS AGAINST GASTROINTESTINAL ULCER
     Route: 065
  4. TRETINOIN. [Suspect]
     Active Substance: TRETINOIN
     Dosage: CONSOLIDATION THERAPY
     Route: 048
  5. IDARUBICIN [Concomitant]
     Active Substance: IDARUBICIN
     Indication: ACUTE PROMYELOCYTIC LEUKAEMIA
     Dosage: ON DAYS 2, 4, 6 AND 8 OF INDUCTION THERAPY
     Route: 065
  6. ATAZANAVIR [Concomitant]
     Active Substance: ATAZANAVIR
     Indication: HIV INFECTION
     Route: 048
  7. TRETINOIN. [Suspect]
     Active Substance: TRETINOIN
     Dosage: INDUCTION THERAPY RESTARTED AND SUBSEQUENTLY COMPLETED INDUCTION THERAPY.
     Route: 048
  8. IDARUBICIN [Concomitant]
     Active Substance: IDARUBICIN
     Dosage: SECOND CONSOLIDATION THERAPY WITH ATRA
     Route: 065
  9. METHOTREXATE. [Concomitant]
     Active Substance: METHOTREXATE
     Indication: ACUTE PROMYELOCYTIC LEUKAEMIA
     Dosage: MAINTENANCE THERAPY
     Route: 065
  10. TENOFOVIR [Concomitant]
     Active Substance: TENOFOVIR
     Indication: HIV INFECTION
     Dosage: 1 TABLET DAILY.
     Route: 065
  11. FOSAMPRENAVIR [Concomitant]
     Active Substance: FOSAMPRENAVIR
     Indication: HIV INFECTION
     Route: 065
  12. TRETINOIN. [Suspect]
     Active Substance: TRETINOIN
     Indication: ACUTE PROMYELOCYTIC LEUKAEMIA
     Dosage: INDUCTION THERAPY STARTING ON DAY 1 AND DISCONTINUED FOR 4 DAYS AFTER DIFFERENTITATION SYNDROME
     Route: 048
  13. DEXAMETHASONE. [Concomitant]
     Active Substance: DEXAMETHASONE
     Indication: PROPHYLAXIS
     Route: 042
  14. RALTEGRAVIR. [Concomitant]
     Active Substance: RALTEGRAVIR
     Indication: HIV INFECTION
     Route: 048
  15. TRETINOIN. [Suspect]
     Active Substance: TRETINOIN
     Dosage: MAINTENANCE THERAPY.
     Route: 048
  16. 6-MERCAPTOPURINE [Concomitant]
     Active Substance: MERCAPTOPURINE
     Indication: ACUTE PROMYELOCYTIC LEUKAEMIA
     Dosage: MAINTENANCE THERAPY
     Route: 065
  17. IDARUBICIN [Concomitant]
     Active Substance: IDARUBICIN
     Dosage: FIRST CONSOLIDATION THERAPY WITH ATRA
     Route: 065
  18. MITOXANTRONE [Concomitant]
     Active Substance: MITOXANTRONE HYDROCHLORIDE
     Indication: ACUTE PROMYELOCYTIC LEUKAEMIA
     Dosage: GIVEN DURING FIRST CONSOLIDATION THERAPY WITH ATRA.
     Route: 065

REACTIONS (1)
  - Acute promyelocytic leukaemia differentiation syndrome [Unknown]
